FAERS Safety Report 11994814 (Version 1)
Quarter: 2016Q1

REPORT INFORMATION
  Report Type: Spontaneous
  Country: US (occurrence: US)
  Receive Date: 20160203
  Receipt Date: 20160203
  Transmission Date: 20160526
  Serious: No
  Sender: FDA-Public Use
  Company Number: US-ELI_LILLY_AND_COMPANY-US201602000523

PATIENT
  Sex: Male

DRUGS (3)
  1. CYMBALTA [Suspect]
     Active Substance: DULOXETINE HYDROCHLORIDE
     Dosage: 10 MG, UNKNOWN
     Route: 065
  2. CYMBALTA [Suspect]
     Active Substance: DULOXETINE HYDROCHLORIDE
     Indication: NEURALGIA
     Dosage: 60 MG, UNKNOWN
     Route: 065
  3. CYMBALTA [Suspect]
     Active Substance: DULOXETINE HYDROCHLORIDE
     Dosage: 30 MG, UNKNOWN
     Route: 065

REACTIONS (24)
  - Agitation [Unknown]
  - Mania [Unknown]
  - Vertigo [Unknown]
  - Dizziness [Unknown]
  - Gait disturbance [Unknown]
  - Cardiac disorder [Unknown]
  - Depression [Unknown]
  - Nightmare [Unknown]
  - Nausea [Unknown]
  - Abdominal pain upper [Unknown]
  - Abdominal distension [Unknown]
  - Paraesthesia [Unknown]
  - Diarrhoea [Unknown]
  - Tremor [Unknown]
  - Off label use [Unknown]
  - Anxiety [Unknown]
  - Muscle spasms [Unknown]
  - Migraine [Unknown]
  - Vomiting [Unknown]
  - Drug withdrawal syndrome [Unknown]
  - Night sweats [Unknown]
  - Affect lability [Unknown]
  - Constipation [Unknown]
  - Drug ineffective [Unknown]
